FAERS Safety Report 18164238 (Version 3)
Quarter: 2023Q2

REPORT INFORMATION
  Report Type: Spontaneous
  Country: US (occurrence: US)
  Receive Date: 20200818
  Receipt Date: 20230504
  Transmission Date: 20230721
  Serious: Yes (Other)
  Sender: FDA-Public Use
  Company Number: US-GILEAD-2020-0490115

PATIENT
  Sex: Male
  Weight: 61.224 kg

DRUGS (41)
  1. TRUVADA [Suspect]
     Active Substance: EMTRICITABINE\TENOFOVIR DISOPROXIL FUMARATE
     Indication: HIV infection
     Dosage: UNK
     Route: 048
     Dates: start: 2004, end: 20111214
  2. TRUVADA [Suspect]
     Active Substance: EMTRICITABINE\TENOFOVIR DISOPROXIL FUMARATE
     Dosage: UNK
     Route: 048
     Dates: start: 2008, end: 2012
  3. HYDROCHLOROTHIAZIDE [Concomitant]
     Active Substance: HYDROCHLOROTHIAZIDE
  4. NORVASC [Concomitant]
     Active Substance: AMLODIPINE BESYLATE
  5. XANAX [Concomitant]
     Active Substance: ALPRAZOLAM
  6. KLONOPIN [Concomitant]
     Active Substance: CLONAZEPAM
  7. TRAZODONE [Concomitant]
     Active Substance: TRAZODONE HYDROCHLORIDE
  8. COMBIVIR [Concomitant]
     Active Substance: LAMIVUDINE\ZIDOVUDINE
  9. CRIXIVAN [Concomitant]
     Active Substance: INDINAVIR SULFATE
  10. ISENTRESS [Concomitant]
     Active Substance: RALTEGRAVIR POTASSIUM
  11. KALETRA [Concomitant]
     Active Substance: LOPINAVIR\RITONAVIR
  12. NORVIR [Concomitant]
     Active Substance: RITONAVIR
  13. SUSTIVA [Concomitant]
     Active Substance: EFAVIRENZ
  14. TRIUMEQ [Concomitant]
     Active Substance: ABACAVIR SULFATE\DOLUTEGRAVIR SODIUM\LAMIVUDINE
  15. ZIAGEN [Concomitant]
     Active Substance: ABACAVIR SULFATE
  16. ALPRAZOLAM [Concomitant]
     Active Substance: ALPRAZOLAM
  17. AMLODIPINE BESYLATE [Concomitant]
     Active Substance: AMLODIPINE BESYLATE
  18. ATORVASTATIN [Concomitant]
     Active Substance: ATORVASTATIN
  19. AZITHROMYCIN [Concomitant]
     Active Substance: AZITHROMYCIN
  20. BUPROPION [Concomitant]
     Active Substance: BUPROPION
  21. CEPHALEXIN [Concomitant]
     Active Substance: CEPHALEXIN
  22. CIPROFLOXACIN [Concomitant]
     Active Substance: CIPROFLOXACIN
  23. CLONAZEPAM [Concomitant]
     Active Substance: CLONAZEPAM
  24. COLCHICINE [Concomitant]
     Active Substance: COLCHICINE
  25. DOXAZOSIN [Concomitant]
     Active Substance: DOXAZOSIN MESYLATE
  26. DRONABINOL [Concomitant]
     Active Substance: DRONABINOL
  27. FISH OIL [Concomitant]
     Active Substance: FISH OIL
  28. FINASTERIDE [Concomitant]
     Active Substance: FINASTERIDE
  29. FLOMAX [Concomitant]
     Active Substance: TAMSULOSIN HYDROCHLORIDE
  30. FLONASE ALLERGY RELIEF [Concomitant]
     Active Substance: FLUTICASONE PROPIONATE
  31. GUAIFENESIN [Concomitant]
     Active Substance: GUAIFENESIN
  32. HYDROCODONE [Concomitant]
     Active Substance: HYDROCODONE
  33. LIPITOR [Concomitant]
     Active Substance: ATORVASTATIN CALCIUM
  34. METRONIDAZOLE [Concomitant]
     Active Substance: METRONIDAZOLE
  35. VITAMINS [Concomitant]
     Active Substance: VITAMINS
  36. PROMETHAZINE [Concomitant]
     Active Substance: PROMETHAZINE HYDROCHLORIDE
  37. TIOTROPIUM BROMIDE [Concomitant]
     Active Substance: TIOTROPIUM BROMIDE
  38. HERBALS\TURMERIC [Concomitant]
     Active Substance: HERBALS\TURMERIC
  39. VALACYCLOVIR [Concomitant]
     Active Substance: VALACYCLOVIR HYDROCHLORIDE
  40. ALBUTEROL SULFATE [Concomitant]
     Active Substance: ALBUTEROL SULFATE
  41. VITAMIN D NOS [Concomitant]
     Active Substance: VITAMIN D NOS

REACTIONS (6)
  - Chronic kidney disease [Not Recovered/Not Resolved]
  - Renal impairment [Unknown]
  - Emotional distress [Unknown]
  - Anxiety [Not Recovered/Not Resolved]
  - Pain [Unknown]
  - Depression [Not Recovered/Not Resolved]

NARRATIVE: CASE EVENT DATE: 20050101
